FAERS Safety Report 5811223-9 (Version None)
Quarter: 2008Q3

REPORT INFORMATION
  Report Type: 
  Country: None (occurrence: None)
  Receive Date: 20080716
  Receipt Date: 20080714
  Transmission Date: 20090109
  Serious: Yes (Hospitalization)
  Sender: FDA-Public Use
  Company Number: US-BRISTOL-MYERS SQUIBB COMPANY-14194757

PATIENT
  Age: 58 Year
  Sex: Male

DRUGS (19)
  1. CARBOPLATIN [Suspect]
     Indication: HEAD AND NECK CANCER
     Dosage: INITIAL DOSE (208MG)STARTED ON 18MAR08.TOTAL DOSE 4. 15APR08 DELAYED RESTARTED ON 23APR08
     Route: 042
     Dates: start: 20080408, end: 20080408
  2. ERBITUX [Suspect]
     Indication: HEAD AND NECK CANCER
     Dosage: INITIATED ON 12MAR08.INITIAL DOSE 804MG. TOTAL DOSE 5. DELAYED ON 15APR08 RESTARTED ON 23APR08
     Route: 042
     Dates: start: 20080408, end: 20080408
  3. ABRAXANE [Suspect]
     Indication: HEAD AND NECK CANCER
     Dosage: INITIATED ON 18MAR08.TOTAL DOSE 4. INITIAL DOSE 40MG. DELAYED ON 15APR08 RESTARTED ON 23APR08
     Route: 042
     Dates: start: 20080408, end: 20080408
  4. RADIATION THERAPY [Suspect]
     Indication: HEAD AND NECK CANCER
     Dosage: 1DF=2GY (2GY/5DAYS A WEEK*7WEEKS).INITIATED ON 11MAR08. DELAYED ON 15APR08  RESTARTED ON 23APR08
     Dates: start: 20080414, end: 20080414
  5. METHADONE HCL [Concomitant]
     Indication: PAIN
     Dates: start: 20080421, end: 20080506
  6. DILAUDID [Concomitant]
     Indication: PAIN
     Dates: start: 20080422
  7. LORAZEPAM [Concomitant]
     Indication: NAUSEA
     Dosage: 1MG EVERY 4HRS AS NEEDED.
     Route: 048
     Dates: start: 20080312, end: 20080506
  8. BENZACLIN [Concomitant]
     Route: 061
     Dates: start: 20080325, end: 20080506
  9. PROCHLORPERAZINE MALEATE [Concomitant]
     Indication: NAUSEA
     Dosage: 10MG, Q 6HRS AS NEEDED.
     Route: 048
  10. FLUCONAZOLE [Concomitant]
     Route: 048
     Dates: start: 20080324, end: 20080506
  11. FENTANYL TRANSDERMAL SYSTEM [Concomitant]
     Indication: PAIN
     Dosage: 50 MCG/HR
     Dates: start: 20080401, end: 20080506
  12. MINOCYCLINE HCL [Concomitant]
     Route: 048
     Dates: start: 20080429
  13. MORPHINE [Concomitant]
     Indication: PAIN
     Dosage: 1 DOSAGE FORM=20MG/ML.
     Route: 048
     Dates: start: 20080414, end: 20080506
  14. OXYCODONE HCL [Concomitant]
     Route: 048
     Dates: start: 20080408, end: 20080506
  15. ZOFRAN [Concomitant]
     Indication: NAUSEA
     Dosage: Q 8HRS
     Route: 048
  16. MILK OF MAGNESIA [Concomitant]
     Indication: CONSTIPATION
     Route: 048
     Dates: start: 20080421, end: 20080506
  17. NYSTATIN [Concomitant]
     Route: 048
     Dates: start: 20080430, end: 20080506
  18. ORAL SWISH [Concomitant]
     Indication: ORAL PAIN
     Dosage: Q 4 HRS.SWISH AND SPIT (DIPHENHYDRAMINE/KAOPECTATE/LIDOCAINE)
     Dates: start: 20080401, end: 20080506
  19. ROXICET [Concomitant]
     Indication: PAIN
     Dosage: Q 4-6 HRS AS NEEDED
     Route: 048
     Dates: start: 20080319, end: 20080414

REACTIONS (2)
  - DERMATITIS [None]
  - MUCOSAL INFLAMMATION [None]
